FAERS Safety Report 14853739 (Version 1)
Quarter: 2018Q2

REPORT INFORMATION
  Report Type: Spontaneous
  Country: SK (occurrence: SK)
  Receive Date: 20180507
  Receipt Date: 20180507
  Transmission Date: 20180711
  Serious: Yes (Other)
  Sender: FDA-Public Use
  Company Number: SK-SA-2018SA118233

PATIENT
  Age: 50 Year
  Sex: Male

DRUGS (9)
  1. TOUJEO [Suspect]
     Active Substance: INSULIN GLARGINE
     Indication: TYPE 1 DIABETES MELLITUS
     Dosage: 16-18 IU
     Route: 058
     Dates: start: 20160525
  2. LANTUS [Suspect]
     Active Substance: INSULIN GLARGINE
     Indication: TYPE 1 DIABETES MELLITUS
     Route: 058
     Dates: start: 200703, end: 201605
  3. FENOFIBRATE. [Concomitant]
     Active Substance: FENOFIBRATE
     Route: 048
  4. PREGABALIN. [Concomitant]
     Active Substance: PREGABALIN
     Dosage: 1-0-1
     Route: 048
  5. SOLOSTAR [Suspect]
     Active Substance: DEVICE
     Dates: start: 20160525
  6. INSULIN ASPART [Suspect]
     Active Substance: INSULIN ASPART
     Indication: TYPE 1 DIABETES MELLITUS
     Route: 065
     Dates: start: 200703, end: 201505
  7. NEBIVOLOL. [Concomitant]
     Active Substance: NEBIVOLOL
     Dosage: 1/2 -0-0
     Route: 048
  8. THIOCTIC ACID [Concomitant]
     Active Substance: THIOCTIC ACID
     Dosage: 1-0-0
     Route: 048
  9. INSULIN HUMAN [Suspect]
     Active Substance: INSULIN HUMAN
     Indication: TYPE 1 DIABETES MELLITUS
     Route: 065
     Dates: start: 201505, end: 201605

REACTIONS (4)
  - Diabetic metabolic decompensation [Recovering/Resolving]
  - Blood glucose abnormal [Recovering/Resolving]
  - Hypoglycaemia [Recovering/Resolving]
  - Weight increased [Unknown]
